FAERS Safety Report 5794130-X (Version None)
Quarter: 2008Q2

REPORT INFORMATION
  Report Type: 
  Country: None (occurrence: None)
  Receive Date: 20080627
  Receipt Date: 20080618
  Transmission Date: 20081010
  Serious: Yes (Hospitalization, Disabling, Other)
  Sender: FDA-Public Use
  Company Number: JP-MERCK-0707USA01575

PATIENT
  Age: 81 Year
  Sex: Female

DRUGS (6)
  1. FOSAMAX [Suspect]
     Indication: OSTEOPOROSIS
     Route: 048
     Dates: start: 20030101, end: 20070709
  2. PREDNISOLONE [Suspect]
     Indication: MUSCULOSKELETAL PAIN
     Route: 048
     Dates: start: 20070330
  3. PREDNISOLONE [Suspect]
     Route: 048
     Dates: start: 20030101, end: 20070329
  4. SOLETON [Concomitant]
     Route: 048
     Dates: start: 20050727
  5. RIMATIL [Suspect]
     Indication: MUSCULOSKELETAL PAIN
     Route: 048
     Dates: start: 20050729
  6. FLURBIPROFEN [Concomitant]
     Route: 065
     Dates: start: 20051111

REACTIONS (3)
  - ABSCESS JAW [None]
  - OSTEOMYELITIS [None]
  - OSTEONECROSIS [None]
